FAERS Safety Report 5705735-6 (Version None)
Quarter: 2008Q2

REPORT INFORMATION
  Report Type: 
  Country: None (occurrence: None)
  Receive Date: 20080415
  Receipt Date: 20080404
  Transmission Date: 20081010
  Serious: Yes (Death)
  Sender: FDA-Public Use
  Company Number: B0515650A

PATIENT
  Age: 77 Year
  Sex: Female

DRUGS (8)
  1. CLAVENTIN [Suspect]
     Indication: SEPSIS
     Route: 042
     Dates: start: 20071203, end: 20071204
  2. VANCOMYCIN [Suspect]
     Indication: SEPSIS
     Route: 042
     Dates: start: 20071205, end: 20071205
  3. GENTAMICIN [Suspect]
     Indication: SEPSIS
     Route: 042
     Dates: start: 20071205, end: 20071205
  4. AMIODARONE [Concomitant]
     Indication: DRUG USE FOR UNKNOWN INDICATION
     Route: 048
  5. CARDENSIEL [Concomitant]
     Indication: DRUG USE FOR UNKNOWN INDICATION
     Route: 048
  6. NEXIUM [Concomitant]
     Indication: DRUG USE FOR UNKNOWN INDICATION
     Route: 048
  7. FOSFOMYCINE [Concomitant]
     Indication: SEPSIS
     Route: 065
  8. TARGOCID [Concomitant]
     Indication: SEPSIS
     Route: 065

REACTIONS (3)
  - RENAL FAILURE CHRONIC [None]
  - STAPHYLOCOCCAL INFECTION [None]
  - URTICARIA [None]
